FAERS Safety Report 8795808 (Version 1)
Quarter: 2012Q4

REPORT INFORMATION
  Report Type: 
  Country: CN (occurrence: CN)
  Receive Date: 20120920
  Receipt Date: 20120920
  Transmission Date: 20130627
  Serious: Yes (Death)
  Sender: FDA-Public Use
  Company Number: CN-PFIZER INC-2012227567

PATIENT
  Age: 80 Year
  Sex: Male

DRUGS (1)
  1. SUTENT [Suspect]
     Indication: GASTROINTESTINAL STROMAL TUMOUR

REACTIONS (5)
  - Disease progression [Fatal]
  - Gastrointestinal stromal tumour [Fatal]
  - Multi-organ failure [Fatal]
  - Ascites [Fatal]
  - Hydrothorax [Fatal]
